FAERS Safety Report 7554883-7 (Version None)
Quarter: 2011Q2

REPORT INFORMATION
  Report Type: 
  Country: None (occurrence: None)
  Receive Date: 20110617
  Receipt Date: 20110610
  Transmission Date: 20111010
  Serious: Yes (Other)
  Sender: FDA-Public Use
  Company Number: BR-ABBOTT-10P-020-0689633-00

PATIENT
  Sex: Female
  Weight: 53 kg

DRUGS (7)
  1. PREDNISONE [Concomitant]
     Indication: RHEUMATOID ARTHRITIS
     Route: 048
  2. METHOTREXATE [Concomitant]
     Indication: RHEUMATOID ARTHRITIS
     Route: 048
  3. ACETAMINOPHEN [Concomitant]
     Indication: PAIN
     Route: 048
  4. OMEPRAZOLE [Concomitant]
     Indication: ABDOMINAL PAIN UPPER
     Route: 048
  5. HUMIRA [Suspect]
     Indication: RHEUMATOID ARTHRITIS
     Route: 058
     Dates: end: 20101101
  6. PREDNISONE [Concomitant]
     Indication: PAIN
  7. FOLIC ACID [Concomitant]
     Indication: PRODUCT USED FOR UNKNOWN INDICATION
     Route: 048

REACTIONS (12)
  - UTERINE HAEMATOMA [None]
  - NAUSEA [None]
  - HYPOTENSION [None]
  - PREMATURE SEPARATION OF PLACENTA [None]
  - PAIN IN EXTREMITY [None]
  - ARTHRALGIA [None]
  - MUSCULOSKELETAL PAIN [None]
  - ABORTION THREATENED [None]
  - DIZZINESS [None]
  - ANAEMIA [None]
  - HEADACHE [None]
  - JOINT SWELLING [None]
